FAERS Safety Report 4898079-6 (Version None)
Quarter: 2006Q1

REPORT INFORMATION
  Report Type: 
  Country: None (occurrence: None)
  Receive Date: 20060130
  Receipt Date: 20060120
  Transmission Date: 20060701
  Serious: Yes (Hospitalization)
  Sender: FDA-Public Use
  Company Number: SUS1-2006-00080

PATIENT
  Age: 34 Year
  Sex: Male

DRUGS (5)
  1. CARBATROL [Suspect]
     Indication: CONVULSION
     Dosage: 300 MG, 2X/DAY:BID, ORAL
     Route: 048
     Dates: start: 20051011, end: 20051103
  2. CLONAZEPAM [Suspect]
  3. REBIF [Suspect]
  4. TOPAMAX [Suspect]
     Indication: CONVULSION
  5. NEURONTIN [Suspect]
     Indication: NEURALGIA
     Dosage: ORAL
     Route: 048
     Dates: start: 20051028, end: 20051103

REACTIONS (5)
  - NEURALGIA [None]
  - PYREXIA [None]
  - REFUSAL OF TREATMENT BY PATIENT [None]
  - STEVENS-JOHNSON SYNDROME [None]
  - SWELLING [None]
